FAERS Safety Report 21146835 (Version 2)
Quarter: 2022Q3

REPORT INFORMATION
  Report Type: Other
  Country: ZA (occurrence: None)
  Receive Date: 20220729
  Receipt Date: 20220823
  Transmission Date: 20221027
  Serious: Yes (Other)
  Sender: FDA-Public Use
  Company Number: ZA-ROCHE-3144507

PATIENT
  Sex: Female

DRUGS (1)
  1. OCREVUS [Suspect]
     Active Substance: OCRELIZUMAB
     Indication: Relapsing multiple sclerosis
     Dosage: THERE AFTER 600MG EVERY 6 MONTHS
     Route: 041
     Dates: start: 20210727

REACTIONS (6)
  - Intervertebral disc protrusion [Unknown]
  - Retention cyst [Unknown]
  - Demyelination [Unknown]
  - Gliosis [Unknown]
  - Neoplasm [Unknown]
  - Cognitive disorder [Unknown]
